FAERS Safety Report 12214497 (Version 1)
Quarter: 2016Q1

REPORT INFORMATION
  Report Type: Spontaneous
  Country: FR (occurrence: FR)
  Receive Date: 20160328
  Receipt Date: 20160328
  Transmission Date: 20160526
  Serious: Yes (Hospitalization)
  Sender: FDA-Public Use
  Company Number: PHHY2016FR038787

PATIENT
  Age: 74 Year
  Sex: Female

DRUGS (7)
  1. GENTAMICIN ^PANPHARMA^ [Suspect]
     Active Substance: GENTAMICIN
     Dosage: UNK
     Route: 065
     Dates: start: 20160202, end: 20160204
  2. MONO-TILDIEM [Concomitant]
     Active Substance: DILTIAZEM HYDROCHLORIDE
     Indication: PRODUCT USED FOR UNKNOWN INDICATION
     Dosage: 200 MG, QD
     Route: 048
  3. AMOXICILLIN AND CLAVULANATE POTASSIUM [Suspect]
     Active Substance: AMOXICILLIN\CLAVULANATE POTASSIUM
     Dosage: 6 G, QD
     Route: 042
     Dates: start: 20160205, end: 20160208
  4. GENTAMICIN ^PANPHARMA^ [Suspect]
     Active Substance: GENTAMICIN
     Indication: ENDOCARDITIS BACTERIAL
     Dosage: 200 MG, QD
     Route: 042
     Dates: start: 20160121, end: 20160131
  5. SELOKEEN [Concomitant]
     Active Substance: METOPROLOL
     Indication: PRODUCT USED FOR UNKNOWN INDICATION
     Dosage: 100 MG, QD
     Route: 048
  6. GENTAMICIN ^PANPHARMA^ [Suspect]
     Active Substance: GENTAMICIN
     Dosage: UNK
     Route: 065
     Dates: start: 20160206, end: 20160207
  7. AMOXICILLIN AND CLAVULANATE POTASSIUM [Suspect]
     Active Substance: AMOXICILLIN\CLAVULANATE POTASSIUM
     Indication: ENDOCARDITIS BACTERIAL
     Dosage: 12 G, QD
     Route: 042
     Dates: start: 20160121, end: 20160204

REACTIONS (1)
  - Acute kidney injury [Recovered/Resolved]

NARRATIVE: CASE EVENT DATE: 20160207
